FAERS Safety Report 10559688 (Version 3)
Quarter: 2014Q4

REPORT INFORMATION
  Report Type: Report from Study
  Country: DE (occurrence: DE)
  Receive Date: 20141103
  Receipt Date: 20141114
  Transmission Date: 20150529
  Serious: Yes (Hospitalization)
  Sender: FDA-Public Use
  Company Number: PHHY2014DE139362

PATIENT
  Sex: Female

DRUGS (1)
  1. EXTAVIA [Suspect]
     Active Substance: INTERFERON BETA-1B
     Indication: MULTIPLE SCLEROSIS
     Dosage: 250 UG, QOD (PER ML)
     Route: 058
     Dates: start: 20140310

REACTIONS (3)
  - Faeces hard [Recovering/Resolving]
  - Injection site pain [Not Recovered/Not Resolved]
  - Fatigue [Recovering/Resolving]
